FAERS Safety Report 16059718 (Version 8)
Quarter: 2019Q3

REPORT INFORMATION
  Report Type: Spontaneous
  Country: US (occurrence: US)
  Receive Date: 20190311
  Receipt Date: 20190916
  Transmission Date: 20191004
  Serious: Yes (Hospitalization)
  Sender: FDA-Public Use
  Company Number: US-ACTELION-A-NJ2019-187503

PATIENT
  Age: 56 Year
  Sex: Female
  Weight: 145.13 kg

DRUGS (6)
  1. UPTRAVI [Suspect]
     Active Substance: SELEXIPAG
     Dosage: 400 MCG, BID
     Route: 048
  2. ADEMPAS [Concomitant]
     Active Substance: RIOCIGUAT
  3. UPTRAVI [Suspect]
     Active Substance: SELEXIPAG
     Indication: PULMONARY ARTERIAL HYPERTENSION
     Dosage: 600 MCG, BID
     Route: 048
  4. UPTRAVI [Suspect]
     Active Substance: SELEXIPAG
     Dosage: 200 MCG, BID
     Route: 048
  5. ELIQUIS [Concomitant]
     Active Substance: APIXABAN
  6. DILTIAZEM. [Concomitant]
     Active Substance: DILTIAZEM

REACTIONS (23)
  - Oxygen therapy [Unknown]
  - Weight decreased [Unknown]
  - Decreased appetite [Recovering/Resolving]
  - Arthritis [Unknown]
  - Insomnia [Unknown]
  - Hospitalisation [Unknown]
  - Pericardial effusion [Unknown]
  - Myalgia [Recovering/Resolving]
  - Gait disturbance [Unknown]
  - Nausea [Unknown]
  - Cardiac failure congestive [Unknown]
  - Headache [Recovering/Resolving]
  - Dyspnoea exertional [Unknown]
  - Back pain [Unknown]
  - Dyspnoea [Unknown]
  - Pain in extremity [Unknown]
  - Fluid retention [Unknown]
  - Atrial fibrillation [Unknown]
  - Pulmonary oedema [Unknown]
  - Productive cough [Unknown]
  - Emergency care [Unknown]
  - Arthralgia [Unknown]
  - Constipation [Recovering/Resolving]

NARRATIVE: CASE EVENT DATE: 20190314
